FAERS Safety Report 8048535-7 (Version None)
Quarter: 2012Q1

REPORT INFORMATION
  Report Type: 
  Country: None (occurrence: None)
  Receive Date: 20120117
  Receipt Date: 20120115
  Transmission Date: 20120608
  Serious: No
  Sender: FDA-Public Use
  Company Number: US-PFIZER INC-2012011615

PATIENT
  Sex: Male
  Weight: 90.7 kg

DRUGS (3)
  1. SYNTHROID [Concomitant]
     Dosage: UNK
  2. DEXILANT [Concomitant]
     Indication: DYSPEPSIA
     Dosage: UNK
  3. CHANTIX [Suspect]
     Indication: SMOKING CESSATION THERAPY
     Dosage: 0.5 MG, 1X/DAY
     Route: 048
     Dates: start: 20120114

REACTIONS (2)
  - NAUSEA [None]
  - HEAD DISCOMFORT [None]
